FAERS Safety Report 10159385 (Version 2)
Quarter: 2014Q2

REPORT INFORMATION
  Report Type: Spontaneous
  Country: US (occurrence: US)
  Receive Date: 20140508
  Receipt Date: 20140508
  Transmission Date: 20141212
  Serious: Yes (Other)
  Sender: FDA-Public Use
  Company Number: PHEH2014US006853

PATIENT
  Age: 52 Year
  Sex: Female

DRUGS (6)
  1. LETROZOLE [Suspect]
     Dosage: 2.5 MG, QD
     Route: 048
     Dates: start: 20130812
  2. VITAMIN D [Concomitant]
     Dosage: UNK UKN, UNK
  3. CALCIUM [Concomitant]
     Dosage: UNK UKN, UNK
  4. B COMPLEX [Concomitant]
     Dosage: UNK UKN, UNK
  5. VITAMIN C [Concomitant]
     Dosage: UNK UKN, UNK
  6. FISH OIL [Concomitant]
     Dosage: UNK UKN, UNK

REACTIONS (2)
  - Skin disorder [Recovering/Resolving]
  - Pruritus [Recovering/Resolving]
